FAERS Safety Report 4978262-1 (Version None)
Quarter: 2006Q2

REPORT INFORMATION
  Report Type: 
  Country: None (occurrence: None)
  Receive Date: 20060420
  Receipt Date: 20060417
  Transmission Date: 20061013
  Serious: Yes (Other)
  Sender: FDA-Public Use
  Company Number: US-GLAXOSMITHKLINE-A0602055A

PATIENT
  Age: 43 Year
  Sex: Male
  Weight: 181.8 kg

DRUGS (10)
  1. NICORETTE (MINT) [Suspect]
     Indication: WEIGHT CONTROL
     Dosage: 4MG SEE DOSAGE TEXT
     Route: 002
     Dates: start: 20060401
  2. LORAZEPAM [Concomitant]
  3. NEURONTIN [Concomitant]
  4. ASPIRIN [Concomitant]
  5. FOLIC ACID [Concomitant]
  6. ASCORBIC ACID [Concomitant]
  7. SAW PALMETTO [Concomitant]
  8. MAGNESIUM [Concomitant]
  9. ZINC [Concomitant]
  10. TOPROL-XL [Concomitant]

REACTIONS (6)
  - ANGER [None]
  - EUPHORIC MOOD [None]
  - INSOMNIA [None]
  - MANIA [None]
  - OVERDOSE [None]
  - STRESS [None]
